FAERS Safety Report 16074480 (Version 3)
Quarter: 2020Q1

REPORT INFORMATION
  Report Type: Spontaneous
  Country: US (occurrence: US)
  Receive Date: 20190314
  Receipt Date: 20200330
  Transmission Date: 20200409
  Serious: Yes (Hospitalization, Other)
  Sender: FDA-Public Use
  Company Number: US-ACTELION-A-US2019-187523

PATIENT
  Age: 32 Year
  Sex: Female
  Weight: 56.69 kg

DRUGS (4)
  1. WARFARIN [Concomitant]
     Active Substance: WARFARIN
  2. TADALAFIL. [Concomitant]
     Active Substance: TADALAFIL
  3. OPSUMIT [Suspect]
     Active Substance: MACITENTAN
     Indication: PULMONARY HYPERTENSION
     Dosage: 10 MG, QD
     Route: 048
     Dates: start: 20150601
  4. REMODULIN [Concomitant]
     Active Substance: TREPROSTINIL

REACTIONS (8)
  - Transplant [Unknown]
  - Hospitalisation [Unknown]
  - Dyspnoea [Unknown]
  - Chills [Unknown]
  - Feeling of body temperature change [Unknown]
  - Cough [Unknown]
  - Nasopharyngitis [Unknown]
  - Productive cough [Unknown]

NARRATIVE: CASE EVENT DATE: 202003
